FAERS Safety Report 8096088-X (Version None)
Quarter: 2012Q1

REPORT INFORMATION
  Report Type: 
  Country: None (occurrence: None)
  Receive Date: 20120131
  Receipt Date: 20120123
  Transmission Date: 20120608
  Serious: Yes (Hospitalization, Disabling, Other)
  Sender: FDA-Public Use
  Company Number: US-SANOFI-AVENTIS-2012SA005006

PATIENT
  Age: 53 Year
  Sex: Female
  Weight: 69 kg

DRUGS (19)
  1. ASPIRIN [Concomitant]
  2. VITAMINS NOS [Concomitant]
  3. LOVAZA [Concomitant]
  4. FOLIC ACID [Concomitant]
  5. METOPROLOL TARTRATE [Concomitant]
  6. CALCIUM [Concomitant]
  7. NITROGLYCERIN [Concomitant]
  8. CRESTOR [Concomitant]
  9. PLAVIX [Suspect]
     Route: 048
     Dates: start: 20040101
  10. DICLOFENAC [Concomitant]
  11. ACETAMINOPHEN W/ PROPOXYPHENE HCL [Concomitant]
  12. FISH OIL [Concomitant]
  13. GARLIC [Concomitant]
  14. INOSITOL NICOTINATE [Concomitant]
  15. RAMIPRIL [Concomitant]
  16. ISOSORBIDE MONONITRATE [Concomitant]
  17. VITAMIN D [Concomitant]
  18. NIACIN [Concomitant]
  19. LIPITOR [Concomitant]

REACTIONS (8)
  - DRUG INEFFECTIVE [None]
  - MYOCARDIAL INFARCTION [None]
  - MUSCULOSKELETAL DISORDER [None]
  - ARTHRITIS [None]
  - ADVERSE DRUG REACTION [None]
  - MOBILITY DECREASED [None]
  - ARTHRALGIA [None]
  - MIDDLE INSOMNIA [None]
